FAERS Safety Report 11251090 (Version 1)
Quarter: 2015Q3

REPORT INFORMATION
  Report Type: Spontaneous
  Country: US (occurrence: US)
  Receive Date: 20150708
  Receipt Date: 20150708
  Transmission Date: 20151125
  Serious: No
  Sender: FDA-Public Use
  Company Number: US-ELI_LILLY_AND_COMPANY-US201105008604

PATIENT
  Sex: Male
  Weight: 72 kg

DRUGS (6)
  1. CARBOPLATIN. [Concomitant]
     Active Substance: CARBOPLATIN
  2. ALIMTA [Suspect]
     Active Substance: PEMETREXED DISODIUM
     Dosage: 300 MG, UNK
     Dates: start: 20110526, end: 20110526
  3. FOLIC ACID. [Concomitant]
     Active Substance: FOLIC ACID
     Dosage: 1 MG, QD
     Route: 048
     Dates: start: 20110526, end: 20110526
  4. VITAMIN B12 [Concomitant]
     Active Substance: CYANOCOBALAMIN
     Dosage: 1000 UG, UNK
     Route: 030
     Dates: start: 20110526
  5. DECADRON [Concomitant]
     Active Substance: DEXAMETHASONE
     Dosage: 20MG 12HRS TO 6HRS BEFORE TAXOL
  6. TAXOL [Concomitant]
     Active Substance: PACLITAXEL

REACTIONS (1)
  - Wrong drug administered [Recovered/Resolved]
